FAERS Safety Report 25713651 (Version 1)
Quarter: 2025Q3

REPORT INFORMATION
  Report Type: Report from Study
  Country: BR (occurrence: BR)
  Receive Date: 20250822
  Receipt Date: 20250822
  Transmission Date: 20251021
  Serious: Yes (Other)
  Sender: JOHNSON AND JOHNSON
  Company Number: BR-JNJFOC-20250804439

PATIENT
  Age: 45 Year
  Sex: Female
  Weight: 74 kg

DRUGS (7)
  1. SIMPONI [Suspect]
     Active Substance: GOLIMUMAB
     Indication: Rheumatoid arthritis
     Route: 058
     Dates: start: 2018, end: 2019
  2. SIMPONI [Suspect]
     Active Substance: GOLIMUMAB
     Indication: Fibromyalgia
  3. SIMPONI [Suspect]
     Active Substance: GOLIMUMAB
     Indication: Rheumatoid arthritis
     Route: 058
     Dates: start: 2018, end: 2019
  4. SIMPONI [Suspect]
     Active Substance: GOLIMUMAB
     Indication: Fibromyalgia
  5. CLONAZEPAM [Concomitant]
     Active Substance: CLONAZEPAM
     Indication: Pain
  6. FLUOXETINE [Concomitant]
     Active Substance: FLUOXETINE HYDROCHLORIDE
     Indication: Pain
  7. NORTRIPTYLINE [Concomitant]
     Active Substance: NORTRIPTYLINE
     Indication: Pain

REACTIONS (23)
  - Rheumatoid arthritis [Not Recovered/Not Resolved]
  - Malaise [Unknown]
  - Decreased appetite [Unknown]
  - Vitamin D decreased [Unknown]
  - Fatigue [Not Recovered/Not Resolved]
  - Mental fatigue [Not Recovered/Not Resolved]
  - Vascular rupture [Unknown]
  - Carpal tunnel syndrome [Unknown]
  - Memory impairment [Not Recovered/Not Resolved]
  - Intervertebral disc protrusion [Unknown]
  - Tendonitis [Unknown]
  - Weight decreased [Unknown]
  - Pruritus [Unknown]
  - Cyst [Unknown]
  - Renal disorder [Unknown]
  - Chest pain [Unknown]
  - Emotional disorder [Not Recovered/Not Resolved]
  - Spinal osteoarthritis [Unknown]
  - Paraesthesia [Not Recovered/Not Resolved]
  - Erythema [Unknown]
  - Visual impairment [Unknown]
  - Insomnia [Unknown]
  - Mass [Unknown]
